FAERS Safety Report 6903457-7 (Version None)
Quarter: 2010Q3

REPORT INFORMATION
  Report Type: 
  Country: None (occurrence: None)
  Receive Date: 20100803
  Receipt Date: 20081010
  Transmission Date: 20110219
  Serious: No
  Sender: FDA-Public Use
  Company Number: US-PFIZER INC-2008085730

PATIENT
  Sex: Female
  Weight: 59.1 kg

DRUGS (3)
  1. LYRICA [Suspect]
     Indication: ARTHRALGIA
     Route: 048
     Dates: start: 20081001, end: 20081008
  2. LYRICA [Suspect]
     Indication: PROCEDURAL PAIN
  3. PERCOCET [Concomitant]

REACTIONS (5)
  - ABDOMINAL PAIN UPPER [None]
  - DIARRHOEA [None]
  - JOINT SWELLING [None]
  - MIDDLE INSOMNIA [None]
  - WEIGHT INCREASED [None]
